FAERS Safety Report 9526079 (Version 3)
Quarter: 2013Q3

REPORT INFORMATION
  Report Type: Spontaneous
  Country: JP (occurrence: JP)
  Receive Date: 20130916
  Receipt Date: 20130924
  Transmission Date: 20140515
  Serious: Yes (Other)
  Sender: FDA-Public Use
  Company Number: JP-ROCHE-1233529

PATIENT
  Age: 32 Year
  Sex: Female

DRUGS (2)
  1. XELODA [Suspect]
     Indication: BREAST CANCER METASTATIC
     Dosage: DOSAGE IS UNCERTAIN.
     Route: 048
     Dates: start: 201204
  2. TYKERB [Concomitant]
     Indication: BREAST CANCER METASTATIC
     Route: 048
     Dates: start: 201204, end: 20130723

REACTIONS (4)
  - Vitreous haemorrhage [Recovering/Resolving]
  - Retinal haemorrhage [Recovered/Resolved with Sequelae]
  - Retinal neovascularisation [Not Recovered/Not Resolved]
  - Paronychia [Not Recovered/Not Resolved]
